FAERS Safety Report 4691666-X (Version None)
Quarter: 2005Q2

REPORT INFORMATION
  Report Type: 
  Country: None (occurrence: None)
  Receive Date: 20050616
  Receipt Date: 20040127
  Transmission Date: 20051028
  Serious: Yes (Death, Hospitalization)
  Sender: FDA-Public Use
  Company Number: PHHO2004ES01716

PATIENT
  Age: 34 Year
  Sex: Male
  Weight: 77 kg

DRUGS (4)
  1. GLEEVEC [Suspect]
     Indication: ACUTE LYMPHOCYTIC LEUKAEMIA
     Dosage: UNK, UNK
     Route: 048
     Dates: start: 20030516, end: 20030323
  2. GLEEVEC [Suspect]
     Dates: start: 20030526, end: 20030608
  3. GLEEVEC [Suspect]
     Dosage: 400 MG, QD
     Route: 048
     Dates: start: 20030618, end: 20040123
  4. CYCLOSPORINE [Suspect]

REACTIONS (6)
  - BLAST CRISIS IN MYELOGENOUS LEUKAEMIA [None]
  - DRUG INEFFECTIVE [None]
  - LEUKAEMIA RECURRENT [None]
  - MALIGNANT NEOPLASM PROGRESSION [None]
  - PYREXIA [None]
  - THROMBOTIC THROMBOCYTOPENIC PURPURA [None]
